FAERS Safety Report 8305602-8 (Version None)
Quarter: 2012Q2

REPORT INFORMATION
  Report Type: 
  Country: None (occurrence: None)
  Receive Date: 20120423
  Receipt Date: 20120417
  Transmission Date: 20120825
  Serious: Yes (Other)
  Sender: FDA-Public Use
  Company Number: PHHY2012SI033026

PATIENT

DRUGS (3)
  1. PAROXETINE HCL [Concomitant]
  2. CLOZAPINE [Suspect]
     Indication: SCHIZOPHRENIA
     Dosage: 300 MG, QD
     Route: 048
  3. MODITEN-DEPO [Concomitant]

REACTIONS (2)
  - WHITE BLOOD CELL COUNT INCREASED [None]
  - LYMPHOCYTE COUNT DECREASED [None]
